FAERS Safety Report 21499810 (Version 5)
Quarter: 2023Q1

REPORT INFORMATION
  Report Type: Spontaneous
  Country: US (occurrence: US)
  Receive Date: 20221024
  Receipt Date: 20230103
  Transmission Date: 20230418
  Serious: Yes (Other)
  Sender: FDA-Public Use
  Company Number: US-PFIZER INC-202201245863

PATIENT
  Age: 71 Year
  Sex: Female
  Weight: 7.57 kg

DRUGS (2)
  1. PAXLOVID [Suspect]
     Active Substance: NIRMATRELVIR\RITONAVIR
     Indication: COVID-19 treatment
     Dosage: UNK
     Dates: start: 20221018
  2. PAXLOVID [Suspect]
     Active Substance: NIRMATRELVIR\RITONAVIR
     Dosage: UNK
     Dates: start: 20221118, end: 20221122

REACTIONS (15)
  - Diarrhoea [Recovered/Resolved]
  - Dehydration [Recovered/Resolved]
  - Asthenia [Unknown]
  - Fatigue [Unknown]
  - Feeling abnormal [Recovering/Resolving]
  - Dizziness [Unknown]
  - Hypokinesia [Unknown]
  - Anxiety [Unknown]
  - Decreased appetite [Unknown]
  - Defaecation urgency [Unknown]
  - Hypertension [Recovered/Resolved]
  - Nausea [Unknown]
  - Muscle spasms [Unknown]
  - COVID-19 [Unknown]
  - Disease recurrence [Unknown]

NARRATIVE: CASE EVENT DATE: 20220101
